FAERS Safety Report 5701733-7 (Version None)
Quarter: 2008Q2

REPORT INFORMATION
  Report Type: 
  Country: None (occurrence: None)
  Receive Date: 20080411
  Receipt Date: 20080401
  Transmission Date: 20081010
  Serious: Yes (Life-Threatening, Hospitalization, Other)
  Sender: FDA-Public Use
  Company Number: GB-JNJFOC-20080400445

PATIENT
  Age: 11 Year
  Sex: Female
  Weight: 40.8 kg

DRUGS (6)
  1. REMICADE [Suspect]
     Indication: CROHN'S DISEASE
     Route: 042
  2. AZATHIOPRINE [Suspect]
     Indication: CROHN'S DISEASE
     Route: 048
  3. ADCAL-D3 [Concomitant]
     Indication: PROPHYLAXIS
     Dosage: 1 DF
     Route: 048
  4. CEFUROXIME [Concomitant]
  5. DOMPERIDONE [Concomitant]
     Indication: NAUSEA
     Route: 048
  6. METRONIDAZOLE HCL [Concomitant]

REACTIONS (1)
  - MENINGITIS LISTERIA [None]
